FAERS Safety Report 10334258 (Version 1)
Quarter: 2014Q3

REPORT INFORMATION
  Report Type: Spontaneous
  Country: DE (occurrence: DE)
  Receive Date: 20140723
  Receipt Date: 20140723
  Transmission Date: 20150326
  Serious: Yes (Hospitalization, Congenital Anomaly)
  Sender: FDA-Public Use
  Company Number: DE-JNJFOC-20140709778

PATIENT
  Sex: Male
  Weight: 3.64 kg

DRUGS (7)
  1. SALBUTAMOL [Suspect]
     Active Substance: ALBUTEROL
     Indication: ASTHMA
     Route: 064
     Dates: start: 20130327, end: 20130618
  2. PROSTAGLANDINS [Concomitant]
     Indication: LABOUR INDUCTION
     Route: 064
     Dates: start: 20140109, end: 20140109
  3. TETRAZEPAM [Suspect]
     Active Substance: TETRAZEPAM
     Indication: HYPOTONIA
     Route: 064
  4. CELEBREX [Suspect]
     Active Substance: CELECOXIB
     Indication: SPONDYLOLISTHESIS
     Route: 064
  5. VIANI [Suspect]
     Active Substance: FLUTICASONE PROPIONATE\SALMETEROL XINAFOATE
     Indication: ASTHMA
     Route: 064
  6. FOLIO FORTE [Concomitant]
     Active Substance: FOLIC ACID\VITAMINS
     Indication: PROPHYLAXIS OF NEURAL TUBE DEFECT
     Route: 064
     Dates: start: 20130517, end: 20140609
  7. IBUPROFEN. [Suspect]
     Active Substance: IBUPROFEN
     Indication: SPONDYLOLISTHESIS
     Route: 064

REACTIONS (3)
  - Transposition of the great vessels [Recovered/Resolved with Sequelae]
  - Ventricular septal defect [Recovered/Resolved with Sequelae]
  - Foetal exposure during pregnancy [Recovered/Resolved with Sequelae]
